FAERS Safety Report 8965853 (Version 1)
Quarter: 2012Q4

REPORT INFORMATION
  Report Type: Spontaneous
  Country: FR (occurrence: None)
  Receive Date: 20121206
  Receipt Date: 20121206
  Transmission Date: 20130627
  Serious: Yes (Hospitalization)
  Sender: FDA-Public Use
  Company Number: DSA_61159_2012

PATIENT
  Age: 52 Year
  Sex: Female

DRUGS (19)
  1. FLAGYL [Suspect]
     Indication: APPENDICITIS
     Route: 048
     Dates: start: 20120924, end: 20121014
  2. OFLOCET [Suspect]
     Indication: APPENDICITIS
     Route: 048
     Dates: start: 20120924, end: 20121017
  3. KARDEGIC [Concomitant]
  4. EZERROL [Concomitant]
  5. TAHOR [Concomitant]
  6. ONE-ALPHA [Concomitant]
  7. INEXIUM /01479302/ [Concomitant]
  8. RENAGEL /01459902/ [Concomitant]
  9. UVEDOSE [Concomitant]
  10. EUPRESSYL /00631801/ [Concomitant]
  11. TEMERIT [Concomitant]
  12. COVERAM [Concomitant]
  13. NOVORAPID [Concomitant]
  14. NOVOMIX [Concomitant]
  15. ARANESP [Concomitant]
  16. FORTUM /00559701/ [Concomitant]
  17. CEFACIDAL [Concomitant]
  18. ROCEPHINE [Concomitant]
  19. GENTAMICIN [Concomitant]

REACTIONS (8)
  - Liver injury [None]
  - Rash [None]
  - Shock haemorrhagic [None]
  - Hepatitis [None]
  - Skin exfoliation [None]
  - Toxic skin eruption [None]
  - Eosinophilia [None]
  - Infection [None]
